FAERS Safety Report 11853527 (Version 1)
Quarter: 2015Q4

REPORT INFORMATION
  Report Type: Spontaneous
  Country: AU (occurrence: AU)
  Receive Date: 20151219
  Receipt Date: 20151219
  Transmission Date: 20160305
  Serious: Yes (Hospitalization, Other)
  Sender: FDA-Public Use
  Company Number: AU-PAR PHARMACEUTICAL COMPANIES-2015SCPR015017

PATIENT

DRUGS (7)
  1. PREGABALIN. [Suspect]
     Active Substance: PREGABALIN
     Indication: NEURALGIA
     Dosage: UNK, UNKNOWN
     Route: 065
     Dates: start: 20150526
  2. KETALAR [Suspect]
     Active Substance: KETAMINE HYDROCHLORIDE
     Indication: PAIN MANAGEMENT
     Dosage: UNK UNK, UNKNOWN
     Route: 042
     Dates: start: 20151022
  3. MORPHINE [Suspect]
     Active Substance: MORPHINE
     Indication: PAIN MANAGEMENT
     Dosage: UNK UNK, UNKNOWN
     Route: 042
     Dates: start: 20151022
  4. BLINDED STUDY MEDICATION+CAPECITABINE [Suspect]
     Active Substance: CAPECITABINE
     Indication: ADENOCARCINOMA PANCREAS
     Dosage: 15 MG, BID
     Route: 048
     Dates: start: 20151014, end: 20151025
  5. BLINDED STUDY MEDICATION+CAPECITABINE [Suspect]
     Active Substance: CAPECITABINE
     Dosage: 15 MG, BID
     Route: 048
     Dates: start: 20151104
  6. BLINDED STUDY MEDICATION+CAPECITABINE [Suspect]
     Active Substance: CAPECITABINE
     Dosage: 1500 MG, BID
     Route: 048
     Dates: start: 20151014, end: 20151025
  7. BLINDED STUDY MEDICATION+CAPECITABINE [Suspect]
     Active Substance: CAPECITABINE
     Dosage: 1500 MG, BID
     Route: 048
     Dates: start: 20151104

REACTIONS (5)
  - Respiratory rate decreased [Unknown]
  - Delirium [Recovered/Resolved]
  - Lower respiratory tract infection [Recovering/Resolving]
  - Product use issue [Unknown]
  - Confusional state [None]

NARRATIVE: CASE EVENT DATE: 20151022
